FAERS Safety Report 24954645 (Version 1)
Quarter: 2025Q1

REPORT INFORMATION
  Report Type: Spontaneous
  Country: US (occurrence: None)
  Receive Date: 20250210
  Receipt Date: 20250210
  Transmission Date: 20250408
  Serious: Yes (Hospitalization)
  Sender: FDA-CTU
  Company Number: None

PATIENT
  Age: 9 Year
  Sex: Male

DRUGS (6)
  1. TACROLIMUS [Suspect]
     Active Substance: TACROLIMUS
     Indication: Prophylaxis against transplant rejection
     Dosage: 0.5 MG BID ORAL
     Route: 048
     Dates: start: 20240923, end: 20250209
  2. FLUCONAZOLE [Concomitant]
     Active Substance: FLUCONAZOLE
  3. MYCOPHENOLIC ACID [Concomitant]
     Active Substance: MYCOPHENOLIC ACID
  4. VALGANCICLOVIR [Concomitant]
     Active Substance: VALGANCICLOVIR
  5. lorrous sulfate [Concomitant]
  6. CALCITRIOL [Concomitant]
     Active Substance: CALCITRIOL

REACTIONS (3)
  - Immunosuppressant drug level increased [None]
  - Adverse event [None]
  - Therapy change [None]

NARRATIVE: CASE EVENT DATE: 20250205
